FAERS Safety Report 8279797-9 (Version None)
Quarter: 2012Q2

REPORT INFORMATION
  Report Type: 
  Country: None (occurrence: None)
  Receive Date: 20120412
  Receipt Date: 20110802
  Transmission Date: 20120825
  Serious: No
  Sender: FDA-Public Use
  Company Number: US-ASTRAZENECA-2011SE46176

PATIENT
  Age: 46 Year
  Sex: Male
  Weight: 170 kg

DRUGS (2)
  1. NEXIUM [Suspect]
     Indication: GASTROOESOPHAGEAL REFLUX DISEASE
     Route: 048
  2. ANTIBIOTIC THE FIRST WEEK [Concomitant]

REACTIONS (2)
  - DIARRHOEA [None]
  - DRUG DOSE OMISSION [None]
